FAERS Safety Report 5087050-X (Version None)
Quarter: 2006Q3

REPORT INFORMATION
  Report Type: 
  Country: None (occurrence: None)
  Receive Date: 20060821
  Receipt Date: 20060808
  Transmission Date: 20061208
  Serious: Yes (Hospitalization)
  Sender: FDA-Public Use
  Company Number: 2006097567

PATIENT
  Age: 57 Year
  Sex: Female

DRUGS (8)
  1. ATARAX [Suspect]
     Indication: DRUG USE FOR UNKNOWN INDICATION
     Dosage: 4 DF (100 MG, DAILY) ORAL
     Route: 048
     Dates: start: 20040901
  2. THALIDOMIDE (THALIDOMIDE) [Suspect]
     Indication: PRURIGO
     Dosage: 50 MG ; 150 MG
     Dates: start: 20040901, end: 20050509
  3. THALIDOMIDE (THALIDOMIDE) [Suspect]
     Indication: PRURIGO
     Dosage: 50 MG ; 150 MG
     Dates: start: 20050509, end: 20050601
  4. THALIDOMIDE (THALIDOMIDE) [Suspect]
     Indication: PRURIGO
     Dosage: 50 MG ; 150 MG
     Dates: start: 20050713, end: 20050928
  5. THALIDOMIDE (THALIDOMIDE) [Suspect]
     Indication: PRURIGO
     Dosage: 50 MG ; 150 MG
     Dates: start: 20051130, end: 20060222
  6. THALIDOMIDE (THALIDOMIDE) [Suspect]
     Indication: PRURIGO
     Dosage: 50 MG ; 150 MG
     Dates: start: 20050601, end: 20060713
  7. MODANE (CALCIUM PANTHTHENATE, DANTRON) [Suspect]
     Indication: CONSTIPATION
     Dosage: 50 MG ORAL
     Route: 048
  8. DOXEPIN HYDROCHLORIDE (DOXEPIN) [Suspect]
     Indication: DEPRESSION
     Dosage: 150 MG ORAL
     Route: 048

REACTIONS (4)
  - DYSKINESIA [None]
  - MUSCULAR WEAKNESS [None]
  - PERIPHERAL SENSORY NEUROPATHY [None]
  - TENDONITIS [None]
